FAERS Safety Report 5247015-1 (Version None)
Quarter: 2007Q1

REPORT INFORMATION
  Report Type: 
  Country: None (occurrence: None)
  Receive Date: 20070226
  Receipt Date: 20070220
  Transmission Date: 20070707
  Serious: Yes (Other)
  Sender: FDA-Public Use
  Company Number: JP-JPN-A200700602

PATIENT
  Sex: Male

DRUGS (9)
  1. PAXIL [Suspect]
     Indication: DEPRESSION
     Dosage: 20MG PER DAY
     Route: 048
  2. ASVERIN [Suspect]
     Route: 048
  3. ASPENON [Concomitant]
     Route: 065
  4. FLIVAS [Concomitant]
     Route: 048
  5. DILTIAZEM HCL [Concomitant]
     Route: 048
  6. NU-LOTAN [Concomitant]
     Route: 048
  7. MUCODYNE [Concomitant]
     Route: 048
  8. MUCOSOLVAN [Concomitant]
     Route: 048
  9. PURSENNID [Concomitant]
     Route: 048

REACTIONS (1)
  - INTERSTITIAL LUNG DISEASE [None]
